FAERS Safety Report 25859015 (Version 1)
Quarter: 2025Q3

REPORT INFORMATION
  Report Type: Spontaneous
  Country: US (occurrence: US)
  Receive Date: 20250929
  Receipt Date: 20250929
  Transmission Date: 20251020
  Serious: Yes (Hospitalization)
  Sender: CIPLA
  Company Number: US-MLMSERVICE-20250908-PI638941-00312-1

PATIENT

DRUGS (1)
  1. TESTOSTERONE [Suspect]
     Active Substance: TESTOSTERONE
     Indication: Hormone therapy
     Route: 065

REACTIONS (3)
  - Hypoglycaemia [Recovering/Resolving]
  - Thrombocytosis [Recovering/Resolving]
  - Intentional product misuse [Unknown]
